FAERS Safety Report 8790319 (Version 1)
Quarter: 2012Q4

REPORT INFORMATION
  Report Type: 
  Country: GB (occurrence: GB)
  Receive Date: 20120917
  Receipt Date: 20120917
  Transmission Date: 20130627
  Serious: Yes (Hospitalization, Other)
  Sender: FDA-Public Use
  Company Number: GB-MYLANLABS-2012S1018334

PATIENT
  Age: 37 Year
  Sex: Male
  Weight: 88.9 kg

DRUGS (3)
  1. OMEPRAZOLE [Suspect]
     Indication: PRODUCT USED FOR UNKNOWN INDICATION
     Dates: start: 20110930
  2. CIPROFLOXACIN [Suspect]
     Indication: PRODUCT USED FOR UNKNOWN INDICATION
  3. SEROQUEL [Concomitant]
     Indication: PRODUCT USED FOR UNKNOWN INDICATION

REACTIONS (14)
  - Breast inflammation [Unknown]
  - Dehydration [Unknown]
  - Toxicity to various agents [Not Recovered/Not Resolved]
  - Thirst [Unknown]
  - Hair disorder [Unknown]
  - Nausea [Unknown]
  - Prostatitis [Unknown]
  - Malaise [Unknown]
  - Skin disorder [Unknown]
  - Gastritis [Unknown]
  - Tendon disorder [Unknown]
  - Visual impairment [Unknown]
  - Vomiting [Unknown]
  - Photosensitivity reaction [Unknown]
